FAERS Safety Report 6738268-9 (Version None)
Quarter: 2010Q2

REPORT INFORMATION
  Report Type: 
  Country: None (occurrence: None)
  Receive Date: 20100524
  Receipt Date: 20100519
  Transmission Date: 20101027
  Serious: Yes (Hospitalization)
  Sender: FDA-Public Use
  Company Number: A0860429A

PATIENT
  Sex: Female

DRUGS (8)
  1. ADVAIR DISKUS 100/50 [Suspect]
     Indication: CHRONIC OBSTRUCTIVE PULMONARY DISEASE
     Dosage: 1PUFF TWICE PER DAY
     Route: 055
     Dates: start: 20090101, end: 20090101
  2. METOPROLOL [Concomitant]
  3. LASIX [Concomitant]
  4. LOVASTATIN [Concomitant]
  5. PREDNISOLONE [Concomitant]
  6. POTASSIUM [Concomitant]
  7. TENORMIN [Concomitant]
  8. PROAIR HFA [Concomitant]

REACTIONS (2)
  - PHARYNGEAL OEDEMA [None]
  - SWOLLEN TONGUE [None]
